FAERS Safety Report 18420343 (Version 1)
Quarter: 2020Q4

REPORT INFORMATION
  Report Type: Spontaneous
  Country: US (occurrence: US)
  Receive Date: 20201023
  Receipt Date: 20201023
  Transmission Date: 20210114
  Serious: Yes (Other)
  Sender: FDA-Public Use
  Company Number: US-BAYER-2020-222641

PATIENT
  Age: 58 Year
  Sex: Female

DRUGS (3)
  1. TAMIFLU [Suspect]
     Active Substance: OSELTAMIVIR PHOSPHATE
     Dosage: UNK
     Dates: start: 202003
  2. ALEVE [Suspect]
     Active Substance: NAPROXEN SODIUM
     Indication: PAIN
     Route: 048
  3. HUMIRA [Suspect]
     Active Substance: ADALIMUMAB
     Dosage: 40 MG
     Dates: start: 20190920, end: 202003

REACTIONS (20)
  - Gait disturbance [Unknown]
  - Dyspnoea [Unknown]
  - Allergic cough [Unknown]
  - Osteoporosis [Unknown]
  - Tobacco user [Unknown]
  - Pain in extremity [Unknown]
  - Paraesthesia [Unknown]
  - Renal impairment [Unknown]
  - Joint stiffness [Not Recovered/Not Resolved]
  - Joint injury [Unknown]
  - Arthralgia [Unknown]
  - Hepatic enzyme increased [Unknown]
  - Respiratory tract congestion [Unknown]
  - Hypersensitivity [Unknown]
  - Joint effusion [Unknown]
  - Hypoaesthesia [Not Recovered/Not Resolved]
  - Pain in extremity [Unknown]
  - Gastrointestinal disorder [Unknown]
  - Intentional product misuse [Unknown]
  - Anxiety [Not Recovered/Not Resolved]

NARRATIVE: CASE EVENT DATE: 2019
